FAERS Safety Report 25324648 (Version 2)
Quarter: 2025Q3

REPORT INFORMATION
  Report Type: Report from Study
  Country: US (occurrence: US)
  Receive Date: 20250516
  Receipt Date: 20250703
  Transmission Date: 20251020
  Serious: Yes (Death, Other)
  Sender: OTSUKA
  Company Number: US-MMM-Otsuka-390UJSEX

PATIENT
  Sex: Male
  Weight: 72.56 kg

DRUGS (3)
  1. BREXPIPRAZOLE [Suspect]
     Active Substance: BREXPIPRAZOLE
     Indication: Anger
     Dosage: 1 DF, QD (TOOK ONE TABLET)
     Route: 048
     Dates: start: 20240624, end: 20250511
  2. VITAMINS NOS [Concomitant]
     Active Substance: VITAMINS
     Indication: Product used for unknown indication
     Route: 065
  3. ALUMINUM HYDROXIDE\MAGNESIUM TRISILICATE\SODIUM ALGINATE [Concomitant]
     Active Substance: ALUMINUM HYDROXIDE\MAGNESIUM TRISILICATE\SODIUM ALGINATE
     Indication: Gastrooesophageal reflux disease
     Dosage: 40 MG TWICE A DAY, PRN
     Route: 065

REACTIONS (4)
  - General physical health deterioration [Fatal]
  - Dementia Alzheimer^s type [Fatal]
  - Dysphagia [Unknown]
  - Drug effective for unapproved indication [Unknown]
